FAERS Safety Report 6539436-1 (Version None)
Quarter: 2010Q1

REPORT INFORMATION
  Report Type: 
  Country: None (occurrence: None)
  Receive Date: 20100115
  Receipt Date: 20100112
  Transmission Date: 20100710
  Serious: Yes (Other)
  Sender: FDA-Public Use
  Company Number: ES-ROXANE LABORATORIES, INC.-2010-RO-00011RO

PATIENT
  Age: 3 Year
  Sex: Male

DRUGS (2)
  1. RISPERIDONE [Suspect]
     Indication: ASPERGER'S DISORDER
     Dosage: 0.5 MG
  2. RISPERIDONE [Suspect]
     Dosage: 2 MG

REACTIONS (1)
  - HYPERPROLACTINAEMIA [None]
